FAERS Safety Report 24994950 (Version 1)
Quarter: 2025Q1

REPORT INFORMATION
  Report Type: Spontaneous
  Country: SE (occurrence: SE)
  Receive Date: 20250221
  Receipt Date: 20250221
  Transmission Date: 20250408
  Serious: Yes (Other)
  Sender: REGENERON
  Company Number: SE-BAYER-2024A139969

PATIENT
  Age: 57 Year
  Sex: Male

DRUGS (1)
  1. EYLEA HD [Suspect]
     Active Substance: AFLIBERCEPT
     Indication: Diabetic retinal oedema
     Route: 031
     Dates: start: 20240625, end: 20240805

REACTIONS (4)
  - Visual impairment [Recovered/Resolved]
  - Uveitis [Recovered/Resolved]
  - Endophthalmitis [Recovered/Resolved]
  - Eye pain [Recovered/Resolved]

NARRATIVE: CASE EVENT DATE: 20240810
